FAERS Safety Report 9440647 (Version 2)
Quarter: 2013Q3

REPORT INFORMATION
  Report Type: Report from Study
  Country: US (occurrence: US)
  Receive Date: 20130805
  Receipt Date: 20130820
  Transmission Date: 20140515
  Serious: Yes (Hospitalization, Other)
  Sender: FDA-Public Use
  Company Number: US-ACTELION-A-NJ2009-25314

PATIENT
  Age: 41 Year
  Sex: Male

DRUGS (8)
  1. TRACLEER [Suspect]
     Indication: PULMONARY ARTERIAL HYPERTENSION
     Dosage: 125 MG, BID
     Route: 048
     Dates: start: 2009, end: 200909
  2. TRACLEER [Suspect]
     Dosage: UNK
     Route: 048
     Dates: start: 20050202, end: 20090429
  3. TRACLEER [Suspect]
     Dosage: 125 MG, BID
     Route: 048
     Dates: start: 20090925
  4. CIPROFLOXACIN [Suspect]
  5. COUMADIN [Suspect]
  6. FLOLAN [Concomitant]
  7. ATENOLOL [Concomitant]
  8. KEFLEX [Concomitant]

REACTIONS (17)
  - Hepatic failure [Recovered/Resolved]
  - Hepatitis acute [Recovered/Resolved]
  - Liver function test abnormal [Recovered/Resolved]
  - Aspartate aminotransferase increased [Recovered/Resolved]
  - Alanine aminotransferase increased [Recovered/Resolved]
  - Blood alkaline phosphatase increased [Recovered/Resolved]
  - Blood bilirubin increased [Recovered/Resolved]
  - Jaundice [Recovered/Resolved]
  - International normalised ratio increased [Recovering/Resolving]
  - Epistaxis [Recovering/Resolving]
  - Activated partial thromboplastin time prolonged [Recovering/Resolving]
  - Cholecystitis [Recovered/Resolved]
  - Cholecystectomy [Recovered/Resolved]
  - Abdominal pain upper [Recovered/Resolved]
  - Cholelithiasis [Recovered/Resolved]
  - Bile duct obstruction [Recovered/Resolved]
  - Device related infection [Recovered/Resolved]
